FAERS Safety Report 20460495 (Version 1)
Quarter: 2022Q1

REPORT INFORMATION
  Report Type: Spontaneous
  Country: CN (occurrence: CN)
  Receive Date: 20220211
  Receipt Date: 20220211
  Transmission Date: 20220423
  Serious: Yes (Hospitalization)
  Sender: FDA-Public Use
  Company Number: CN-STRIDES ARCOLAB LIMITED-2022SP001215

PATIENT
  Age: 34 Year
  Sex: Male

DRUGS (14)
  1. PREDNISOLONE [Suspect]
     Active Substance: PREDNISOLONE
     Indication: Malignant lymphoid neoplasm
     Dosage: 50 MILLIGRAM, BID (CHOP REGIMEN)
     Route: 065
  2. PREDNISOLONE [Suspect]
     Active Substance: PREDNISOLONE
     Indication: Haematopoietic neoplasm
  3. CISPLATIN [Suspect]
     Active Substance: CISPLATIN
     Indication: Malignant lymphoid neoplasm
     Dosage: 40 MILLIGRAM (FOR FIRST THREE DAYS)
     Route: 065
  4. CISPLATIN [Suspect]
     Active Substance: CISPLATIN
     Indication: Haematopoietic neoplasm
  5. DEXAMETHASONE [Suspect]
     Active Substance: DEXAMETHASONE
     Indication: Malignant lymphoid neoplasm
     Dosage: 10 MILLIGRAM (FOR 5 DAYS)
     Route: 065
  6. DEXAMETHASONE [Suspect]
     Active Substance: DEXAMETHASONE
     Indication: Haematopoietic neoplasm
  7. ETOPOSIDE [Suspect]
     Active Substance: ETOPOSIDE
     Indication: Malignant lymphoid neoplasm
     Dosage: 100 MILLIGRAM (FOR FIRST FOUR DAYS)
     Route: 065
  8. ETOPOSIDE [Suspect]
     Active Substance: ETOPOSIDE
     Indication: Haematopoietic neoplasm
     Dosage: 100 MILLIGRAM  (DOSE REDUCED, WHICH WAS SUBSEQUENTLY ADJUSTED TO 100MG FOR FIRST THREE DAYS)
     Route: 065
  9. CYCLOPHOSPHAMIDE [Suspect]
     Active Substance: CYCLOPHOSPHAMIDE
     Indication: Malignant lymphoid neoplasm
     Dosage: 600 MILLIGRAM (ON DAYS 1 AND 5 OF THE CHOP REGIMEN)
     Route: 065
  10. CYCLOPHOSPHAMIDE [Suspect]
     Active Substance: CYCLOPHOSPHAMIDE
     Indication: Haematopoietic neoplasm
  11. VINCRISTINE [Suspect]
     Active Substance: VINCRISTINE
     Indication: Malignant lymphoid neoplasm
     Dosage: 2 MILLIGRAM (ON DAY 1 OF THE CHOP REGIMEN)
     Route: 065
  12. VINCRISTINE [Suspect]
     Active Substance: VINCRISTINE
     Indication: Haematopoietic neoplasm
  13. DOXORUBICIN HYDROCHLORIDE [Suspect]
     Active Substance: DOXORUBICIN HYDROCHLORIDE
     Indication: Malignant lymphoid neoplasm
     Dosage: 60 MILLIGRAM (ON DAY 1 OF THE CHOP REGIMEN AND LATER ALONGSIDE ETOPOSIDE, CISPLATIN AND DEXAMETHASON
     Route: 065
  14. DOXORUBICIN HYDROCHLORIDE [Suspect]
     Active Substance: DOXORUBICIN HYDROCHLORIDE
     Indication: Haematopoietic neoplasm

REACTIONS (7)
  - Apathy [Unknown]
  - Fatigue [Unknown]
  - Decreased appetite [Unknown]
  - Myelosuppression [Unknown]
  - Acute myeloid leukaemia [Unknown]
  - Drug ineffective [Unknown]
  - Off label use [Unknown]
